FAERS Safety Report 4973037-1 (Version None)
Quarter: 2006Q2

REPORT INFORMATION
  Report Type: 
  Country: None (occurrence: None)
  Receive Date: 20060410
  Receipt Date: 20060329
  Transmission Date: 20061013
  Serious: Yes (Death)
  Sender: FDA-Public Use
  Company Number: 2006045306

PATIENT
  Sex: Male

DRUGS (2)
  1. BEXTRA [Suspect]
     Indication: INFLAMMATION
     Dosage: ORAL
     Route: 048
     Dates: start: 20030901, end: 20040301
  2. BEXTRA [Suspect]
     Indication: PAIN
     Dosage: ORAL
     Route: 048
     Dates: start: 20030901, end: 20040301

REACTIONS (1)
  - MYOCARDIAL INFARCTION [None]
